FAERS Safety Report 7693739-6 (Version None)
Quarter: 2011Q3

REPORT INFORMATION
  Report Type: 
  Country: None (occurrence: None)
  Receive Date: 20110819
  Receipt Date: 20110808
  Transmission Date: 20111222
  Serious: Yes (Hospitalization, Other)
  Sender: FDA-Public Use
  Company Number: MY-JNJFOC-20110510401

PATIENT
  Age: 39 Year
  Sex: Male
  Weight: 95 kg

DRUGS (4)
  1. USTEKINUMAB [Suspect]
     Route: 058
     Dates: start: 20110226
  2. USTEKINUMAB [Suspect]
     Indication: PSORIASIS
     Route: 058
     Dates: start: 20110508
  3. USTEKINUMAB [Suspect]
     Route: 058
     Dates: start: 20110618
  4. USTEKINUMAB [Suspect]
     Route: 058
     Dates: start: 20110126

REACTIONS (4)
  - PAIN [None]
  - PURULENT DISCHARGE [None]
  - JOINT SWELLING [None]
  - RASH PUSTULAR [None]
